FAERS Safety Report 7671646-2 (Version None)
Quarter: 2011Q3

REPORT INFORMATION
  Report Type: 
  Country: None (occurrence: None)
  Receive Date: 20110809
  Receipt Date: 20091026
  Transmission Date: 20111222
  Serious: Yes (Death)
  Sender: FDA-Public Use
  Company Number: US-BAYER-200922153NA

PATIENT
  Sex: Male

DRUGS (11)
  1. OMNISCAN [Suspect]
     Dosage: 20 ML, UNK
     Dates: start: 20060214
  2. OPTIMARK [Suspect]
     Indication: NUCLEAR MAGNETIC RESONANCE IMAGING
  3. OMNISCAN [Suspect]
     Indication: NUCLEAR MAGNETIC RESONANCE IMAGING
     Dosage: 20 ML, UNK
     Dates: start: 20031208
  4. OMNISCAN [Suspect]
     Dosage: 20 ML, UNK
     Dates: start: 20050113
  5. OMNISCAN [Suspect]
     Dosage: 20 ML, UNK
     Dates: start: 20040803
  6. GADOLINIUM IN UNSPECIFIED DRUG [Suspect]
     Indication: NUCLEAR MAGNETIC RESONANCE IMAGING
     Dosage: UNK UNK, ONCE
     Route: 042
     Dates: start: 20030728, end: 20030728
  7. OMNISCAN [Suspect]
     Dosage: 20 ML, UNK
     Dates: start: 20050319
  8. MULTIHANCE [Suspect]
     Indication: NUCLEAR MAGNETIC RESONANCE IMAGING
  9. WARFARIN SODIUM [Concomitant]
  10. MAGNEVIST [Suspect]
     Indication: NUCLEAR MAGNETIC RESONANCE IMAGING
  11. AZITHROMYCIN [Concomitant]

REACTIONS (10)
  - NEPHROGENIC SYSTEMIC FIBROSIS [None]
  - MUSCLE CONTRACTURE [None]
  - SCAR [None]
  - SKIN FIBROSIS [None]
  - DEFORMITY [None]
  - GENERAL PHYSICAL HEALTH DETERIORATION [None]
  - PAIN [None]
  - ANHEDONIA [None]
  - ANXIETY [None]
  - FIBROSIS [None]
